FAERS Safety Report 10141454 (Version 1)
Quarter: 2014Q2

REPORT INFORMATION
  Report Type: Report from Study
  Country: US (occurrence: US)
  Receive Date: 20140429
  Receipt Date: 20140429
  Transmission Date: 20141212
  Serious: No
  Sender: FDA-Public Use
  Company Number: US-ABBVIE-14P-163-1199417-00

PATIENT
  Age: 51 Year
  Sex: Male
  Weight: 87.62 kg

DRUGS (5)
  1. ANDROGEL STICK PACK 2.5G [Suspect]
     Indication: BLOOD TESTOSTERONE DECREASED
     Dates: start: 2012
  2. LEVOTHYROXINE [Concomitant]
     Indication: PRODUCT USED FOR UNKNOWN INDICATION
  3. CLONAZEPAM [Concomitant]
     Indication: PRODUCT USED FOR UNKNOWN INDICATION
  4. ZOLPIDEM [Concomitant]
     Indication: PRODUCT USED FOR UNKNOWN INDICATION
  5. MULTIVITAMIN [Concomitant]
     Indication: PRODUCT USED FOR UNKNOWN INDICATION

REACTIONS (3)
  - Heart rate increased [Recovered/Resolved]
  - Poor quality sleep [Recovered/Resolved]
  - Chest pain [Recovered/Resolved]
